FAERS Safety Report 9734170 (Version 1)
Quarter: 2013Q4

REPORT INFORMATION
  Report Type: Other
  Country: IT (occurrence: IT)
  Receive Date: 20131205
  Receipt Date: 20131205
  Transmission Date: 20140711
  Serious: Yes (Other)
  Sender: FDA-Public Use
  Company Number: IT-US-EMD SERONO, INC.-7254371

PATIENT
  Age: 47 Year
  Sex: Female

DRUGS (3)
  1. MITOXANTRONE [Suspect]
     Indication: BREAST CANCER METASTATIC
     Dosage: TWO CYCLES
     Dates: start: 2012
  2. MITOMYCIN [Suspect]
     Indication: BREAST CANCER METASTATIC
     Dosage: TWO CYCLES
     Dates: start: 2012
  3. VINCRISTINE [Suspect]
     Indication: BREAST CANCER METASTATIC
     Dosage: TWO CYCLES
     Dates: start: 2012

REACTIONS (2)
  - Malignant neoplasm progression [Unknown]
  - Drug ineffective [Unknown]
